FAERS Safety Report 20899214 (Version 1)
Quarter: 2022Q2

REPORT INFORMATION
  Report Type: Spontaneous
  Country: US (occurrence: US)
  Receive Date: 20220601
  Receipt Date: 20220601
  Transmission Date: 20220720
  Serious: Yes (Hospitalization, Other)
  Sender: FDA-Public Use
  Company Number: US-ATLANTIDE PHARMACEUTICALS AG-2022ATL000036

PATIENT
  Age: 56 Year
  Sex: Female

DRUGS (1)
  1. LAMOTRIGINE [Suspect]
     Active Substance: LAMOTRIGINE
     Indication: Affective disorder
     Dosage: UNK
     Route: 065

REACTIONS (3)
  - Persistent genital arousal disorder [Recovered/Resolved]
  - Acute psychosis [Unknown]
  - Product use in unapproved indication [Unknown]
